FAERS Safety Report 16222847 (Version 1)
Quarter: 2019Q2

REPORT INFORMATION
  Report Type: Spontaneous
  Country: US (occurrence: US)
  Receive Date: 20190419
  Receipt Date: 20190419
  Transmission Date: 20190711
  Serious: Yes (Hospitalization)
  Sender: FDA-Public Use
  Company Number: None

PATIENT
  Age: 72 Year
  Sex: Female
  Weight: 69.1 kg

DRUGS (17)
  1. CLONIDINE 0.2 MG TABLETS [Concomitant]
  2. ESOMEPRAZOLE 40 MG CAPSULES [Concomitant]
  3. IBUPROFEN 200 MG TABLETS [Concomitant]
     Active Substance: IBUPROFEN
  4. LOSARTAN 100 MG TABLETS [Concomitant]
  5. TIOTROPIUM-OLODATEROL 2.5-2.5 MCG/ACTUATION INHALER [Concomitant]
  6. GLIMEPIRIDE 2 MG TABLETS [Concomitant]
  7. PIOGLITAZONE 15 MG TABLETS [Concomitant]
  8. ASPIRIN EC 81 MG TABLETS [Concomitant]
  9. ROFLUMILAST. [Suspect]
     Active Substance: ROFLUMILAST
     Indication: CHRONIC OBSTRUCTIVE PULMONARY DISEASE
     Dates: start: 20180328, end: 20180501
  10. ALBUTEROL 0.083% NEBULIZATION [Concomitant]
  11. ERGOCALCIFEROL 50,000 UNIT CAPSULES [Concomitant]
  12. FELODIPINE 10 MG TABLETS [Concomitant]
  13. FUROSEMIDE 40 MG TABLETS [Concomitant]
     Active Substance: FUROSEMIDE
  14. BENZONATATE 100 MG CAPSULES [Concomitant]
  15. FOLIC ACID 1 MG TABLETS [Concomitant]
  16. ALBUTEROL 90 MCG/ACTUATION INHALER [Concomitant]
  17. ISOSORBIDE MONONITRATE 30 MG TABLETS [Concomitant]

REACTIONS (2)
  - Nausea [None]
  - Lipase increased [None]

NARRATIVE: CASE EVENT DATE: 20180501
